FAERS Safety Report 7258582-0 (Version None)
Quarter: 2011Q1

REPORT INFORMATION
  Report Type: 
  Country: None (occurrence: None)
  Receive Date: 20110129
  Receipt Date: 20100502
  Transmission Date: 20110831
  Serious: No
  Sender: FDA-Public Use
  Company Number: US-ABBOTT-08P-163-0477786-00

PATIENT
  Sex: Female
  Weight: 61.29 kg

DRUGS (4)
  1. CIPRO [Concomitant]
     Indication: FISTULA
     Route: 048
     Dates: start: 20080601
  2. DARVOCET-N 100 [Concomitant]
     Indication: PAIN
     Dosage: 100/650 MG
     Route: 048
     Dates: start: 20080501
  3. CIPRO [Concomitant]
     Indication: INFECTION PROPHYLAXIS
     Route: 048
     Dates: start: 20080901
  4. HUMIRA [Suspect]
     Indication: CROHN'S DISEASE
     Route: 050

REACTIONS (5)
  - INCORRECT DOSE ADMINISTERED [None]
  - INJECTION SITE PAIN [None]
  - FISTULA DISCHARGE [None]
  - INJECTION SITE EXTRAVASATION [None]
  - FISTULA [None]
